FAERS Safety Report 9555235 (Version 1)
Quarter: 2013Q3

REPORT INFORMATION
  Report Type: Spontaneous
  Country: US (occurrence: None)
  Receive Date: 20130917
  Receipt Date: 20130917
  Transmission Date: 20140515
  Serious: Yes (Other)
  Sender: FDA-Public Use
  Company Number: 089588

PATIENT
  Sex: 0

DRUGS (2)
  1. ROTIGOTINE [Suspect]
     Dosage: TO UNKNOWN
     Route: 062
  2. MIRAPEX [Concomitant]

REACTIONS (1)
  - Syncope [None]
